FAERS Safety Report 9076793 (Version 1)
Quarter: 2013Q1

REPORT INFORMATION
  Report Type: Report from Study
  Country: US (occurrence: US)
  Receive Date: 20130129
  Receipt Date: 20130129
  Transmission Date: 20140127
  Serious: Yes (Other)
  Sender: FDA-Public Use
  Company Number: US-ABBOTT-12P-163-0908958-00

PATIENT
  Age: 63 Year
  Sex: Female

DRUGS (11)
  1. HUMIRA 40 MG/0.8 ML PEN [Suspect]
     Indication: CROHN^S DISEASE
     Route: 058
     Dates: start: 2010, end: 2011
  2. HUMIRA 40 MG/0.8 ML PEN [Suspect]
     Dates: start: 2011
  3. HUMIRA 40 MG/0.8 ML PEN [Suspect]
     Dates: start: 201202
  4. IRON [Suspect]
  5. PREDNISONE [Suspect]
  6. IRON [Concomitant]
     Indication: MINERAL SUPPLEMENTATION
     Dates: end: 201202
  7. METHOTREXATE [Concomitant]
     Indication: PRODUCT USED FOR UNKNOWN INDICATION
     Dosage: WEEKLY
     Route: 050
  8. VIT D [Concomitant]
     Indication: PRODUCT USED FOR UNKNOWN INDICATION
     Dosage: 1000 MG DAILY
  9. FOLIC ACID [Concomitant]
     Indication: PRODUCT USED FOR UNKNOWN INDICATION
     Dosage: 1 MG ACID
  10. FEMHRT [Concomitant]
     Indication: HORMONE REPLACEMENT THERAPY
     Dosage: LOW DOSAGE THREE TIMES A WEEK
  11. PRILOSEC [Concomitant]
     Indication: GASTRIC DISORDER
     Dosage: 20 MG DALY

REACTIONS (11)
  - Cataract operation [Unknown]
  - Underdose [Not Recovered/Not Resolved]
  - Crohn^s disease [Not Recovered/Not Resolved]
  - Pain in extremity [Not Recovered/Not Resolved]
  - Back pain [Not Recovered/Not Resolved]
  - Injection site pain [Not Recovered/Not Resolved]
  - Injection site bruising [Unknown]
  - Constipation [Unknown]
  - C-reactive protein increased [Unknown]
  - Injection site extravasation [Unknown]
  - Drug ineffective [Unknown]
